FAERS Safety Report 9266026 (Version 4)
Quarter: 2013Q3

REPORT INFORMATION
  Report Type: Spontaneous
  Country: US (occurrence: US)
  Receive Date: 20130501
  Receipt Date: 20130701
  Transmission Date: 20140515
  Serious: Yes (Hospitalization)
  Sender: FDA-Public Use
  Company Number: US-B.I. PHARMACEUTICALS,INC./RIDGEFIELD-2013-BI-11574BP

PATIENT
  Sex: Female
  Weight: 86 kg

DRUGS (24)
  1. SPIRIVA [Suspect]
     Indication: CHRONIC OBSTRUCTIVE PULMONARY DISEASE
     Dosage: 18 MCG
     Route: 055
     Dates: start: 2008, end: 2008
  2. SPIRIVA [Suspect]
     Indication: CHRONIC OBSTRUCTIVE PULMONARY DISEASE
     Dosage: 18 MCG
     Route: 055
     Dates: start: 20130218
  3. SPIRIVA [Suspect]
     Dosage: 18 MCG
     Route: 055
  4. UNKNOWN MEDICATION [Concomitant]
     Indication: HYPERTENSION
     Route: 048
  5. LISINOPRIL [Concomitant]
     Dosage: 40 MG
     Route: 048
  6. HYDRALAZINE HCL [Concomitant]
     Dosage: 100 MG
     Route: 048
  7. CYMBALTA 30 MG CPEP [Concomitant]
     Dosage: 30 MG
     Route: 048
  8. PROTONIX 40MG TBEC [Concomitant]
     Dosage: 40 MG
     Route: 048
  9. IRON 325 (65 FE) MG TABS [Concomitant]
     Dosage: 1 TABLET EVERY DAY
     Route: 048
  10. TRAZODONE HCL 100 MG TABS [Concomitant]
     Dosage: 1 TABLET AT BEDTIME
     Route: 048
  11. XANAX 0.5 MG TABS [Concomitant]
     Dosage: 1 MG
     Route: 048
  12. LAMOTRIGINE 100 MG TABS [Concomitant]
     Dosage: 100 MG
     Route: 048
  13. TENEX 1 MG TABS [Concomitant]
     Route: 048
  14. PROAIR HFA AERS [Concomitant]
     Dosage: 8 PUF
  15. SYMBICORT 160-4.5 MCG/ ACT AERO [Concomitant]
     Dosage: 4 PUF
  16. SUBOXONE 2-0.5 MG SUBL [Concomitant]
     Dosage: 1-2 TABLETS
     Route: 048
  17. BUSPIRONE HCL 10 MG TABS [Concomitant]
     Dosage: 20 MG
     Route: 048
  18. LASIX 40 MG TABS [Concomitant]
     Dosage: 40 MG
     Route: 048
  19. FEMHRT LOW DOSE TABS [Concomitant]
     Route: 048
  20. BYSTOLIC 20 MG TABS [Concomitant]
     Dosage: 40 MG
     Route: 048
  21. KLOR-CON M 10 CR- TABS [Concomitant]
     Route: 048
  22. VOLTAREN 1 % GEL [Concomitant]
  23. LIDODERM 5 % PTCH [Concomitant]
  24. KLOR -CON M 10 MEQ CR- TABS [Concomitant]
     Route: 048

REACTIONS (3)
  - Emphysema [Not Recovered/Not Resolved]
  - Back pain [Recovered/Resolved]
  - Local swelling [Not Recovered/Not Resolved]
